FAERS Safety Report 5258292-5 (Version None)
Quarter: 2007Q1

REPORT INFORMATION
  Report Type: 
  Country: None (occurrence: None)
  Receive Date: 20070306
  Receipt Date: 20070306
  Transmission Date: 20070707
  Serious: Yes (Hospitalization)
  Sender: FDA-Public Use
  Company Number: None

PATIENT
  Sex: Female
  Weight: 53.0709 kg

DRUGS (4)
  1. PEGASYS [Suspect]
     Indication: HEPATITIS C
     Dosage: PEGASYS 180 MCG SUBQ WK
     Route: 058
     Dates: start: 20061214, end: 20070212
  2. COPEGUS [Suspect]
     Indication: HEPATITIS C
     Dosage: COPEGUS 600 MG DAILY
     Dates: start: 20061214, end: 20070118
  3. HYPERTENSIVE MEDICATION [Concomitant]
  4. CHOLESTEROL MEDICATION [Concomitant]

REACTIONS (3)
  - CHEST DISCOMFORT [None]
  - DYSPNOEA [None]
  - HAEMOLYTIC ANAEMIA [None]
